FAERS Safety Report 16894741 (Version 1)
Quarter: 2019Q4

REPORT INFORMATION
  Report Type: Spontaneous
  Country: US (occurrence: US)
  Receive Date: 20191008
  Receipt Date: 20191008
  Transmission Date: 20200122
  Serious: Yes (Hospitalization, Other)
  Sender: FDA-Public Use
  Company Number: US-SHIRE-US201932243

PATIENT
  Age: 35 Year
  Sex: Male

DRUGS (2)
  1. NATPARA (PARATHYROID HORMONE) [Suspect]
     Active Substance: PARATHYROID HORMONE
     Indication: PARATHYROIDECTOMY
     Dosage: 100 MICROGRAM
  2. NATPARA (PARATHYROID HORMONE) [Suspect]
     Active Substance: PARATHYROID HORMONE
     Indication: BLOOD CALCIUM ABNORMAL

REACTIONS (3)
  - Abscess limb [Unknown]
  - Product quality issue [Unknown]
  - Wound infection staphylococcal [Unknown]
